FAERS Safety Report 13098395 (Version 1)
Quarter: 2017Q1

REPORT INFORMATION
  Report Type: Spontaneous
  Country: SE (occurrence: SE)
  Receive Date: 20170109
  Receipt Date: 20170109
  Transmission Date: 20170428
  Serious: Yes (Hospitalization)
  Sender: FDA-Public Use
  Company Number: SE-MEDA-2017010029

PATIENT
  Age: 50 Year
  Sex: Female

DRUGS (5)
  1. ZOLPIDEM [Suspect]
     Active Substance: ZOLPIDEM\ZOLPIDEM TARTRATE
  2. ALVEDON [Suspect]
     Active Substance: ACETAMINOPHEN
  3. ALVEDON [Suspect]
     Active Substance: ACETAMINOPHEN
  4. LYRICA [Suspect]
     Active Substance: PREGABALIN
  5. STESOLID [Suspect]
     Active Substance: DIAZEPAM

REACTIONS (4)
  - Intentional self-injury [Unknown]
  - Analgesic drug level increased [Unknown]
  - Toxicity to various agents [Unknown]
  - Overdose [Unknown]
